FAERS Safety Report 17983723 (Version 3)
Quarter: 2020Q4

REPORT INFORMATION
  Report Type: Report from Study
  Country: DE (occurrence: DE)
  Receive Date: 20200706
  Receipt Date: 20201016
  Transmission Date: 20210113
  Serious: Yes (Other)
  Sender: FDA-Public Use
  Company Number: DE-ELI_LILLY_AND_COMPANY-DE202006010844

PATIENT
  Age: 81 Year
  Sex: Female

DRUGS (17)
  1. FORSTEO [Suspect]
     Active Substance: TERIPARATIDE
     Dosage: UNK UNK, 3/W
     Route: 058
     Dates: start: 20200618
  2. VITAMIN D [VITAMIN D NOS] [Concomitant]
     Active Substance: VITAMIN D NOS
     Indication: PRODUCT USED FOR UNKNOWN INDICATION
     Dosage: 20000 INTERNATIONAL UNIT, 2/W
  3. FORSTEO [Suspect]
     Active Substance: TERIPARATIDE
     Dosage: UNK UNK, UNKNOWN
     Route: 065
  4. FORSTEO [Suspect]
     Active Substance: TERIPARATIDE
     Dosage: UNK UNK, UNKNOWN
     Route: 065
  5. FORSTEO [Suspect]
     Active Substance: TERIPARATIDE
     Dosage: UNK UNK, 4/W
     Route: 058
  6. FORSTEO [Suspect]
     Active Substance: TERIPARATIDE
     Dosage: UNK UNK, OTHER (EVERY 3 DAYS)
     Route: 058
  7. FORSTEO [Suspect]
     Active Substance: TERIPARATIDE
     Dosage: UNK UNK, 4/W
     Route: 058
  8. VIGANTOL [COLECALCIFEROL] [Concomitant]
     Active Substance: CHOLECALCIFEROL
     Indication: PRODUCT USED FOR UNKNOWN INDICATION
     Dosage: 1000 U, DAILY
  9. FORSTEO [Suspect]
     Active Substance: TERIPARATIDE
     Dosage: UNK UNK, 3/W
     Route: 058
     Dates: start: 20200618
  10. FORSTEO [Suspect]
     Active Substance: TERIPARATIDE
     Dosage: UNK UNK, 4/W
     Route: 058
  11. FORSTEO [Suspect]
     Active Substance: TERIPARATIDE
     Dosage: UNK UNK, OTHER (EVERY 3 DAYS)
     Route: 058
  12. FORSTEO [Suspect]
     Active Substance: TERIPARATIDE
     Indication: OSTEOPOROSIS
     Dosage: UNK UNK, DAILY
     Route: 058
     Dates: start: 20190603
  13. FORSTEO [Suspect]
     Active Substance: TERIPARATIDE
     Dosage: UNK UNK, 3/W
     Route: 058
     Dates: start: 20200618
  14. FORSTEO [Suspect]
     Active Substance: TERIPARATIDE
     Dosage: UNK UNK, UNKNOWN
     Route: 065
  15. FORSTEO [Suspect]
     Active Substance: TERIPARATIDE
     Dosage: UNK UNK, OTHER (EVERY 3 DAYS)
     Route: 058
  16. FORSTEO [Suspect]
     Active Substance: TERIPARATIDE
     Indication: OSTEOPOROSIS
     Dosage: UNK UNK, DAILY
     Route: 058
     Dates: start: 20190603
  17. FORSTEO [Suspect]
     Active Substance: TERIPARATIDE
     Indication: OSTEOPOROSIS
     Dosage: UNK UNK, DAILY
     Route: 058
     Dates: start: 20190603

REACTIONS (7)
  - Renal atrophy [Not Recovered/Not Resolved]
  - Glomerular filtration rate decreased [Not Recovered/Not Resolved]
  - Bone disorder [Not Recovered/Not Resolved]
  - Expired product administered [Unknown]
  - Inappropriate schedule of product administration [Not Recovered/Not Resolved]
  - Renal disorder [Unknown]
  - Incorrect product administration duration [Not Recovered/Not Resolved]

NARRATIVE: CASE EVENT DATE: 20190603
